FAERS Safety Report 4824706-5 (Version None)
Quarter: 2005Q4

REPORT INFORMATION
  Report Type: 
  Country: None (occurrence: None)
  Receive Date: 20051108
  Receipt Date: 20051024
  Transmission Date: 20060501
  Serious: Yes (Life-Threatening, Hospitalization)
  Sender: FDA-Public Use
  Company Number: 2005PI000484

PATIENT
  Age: 44 Year
  Sex: Male
  Weight: 82.6 kg

DRUGS (8)
  1. RETEPLASE (RETEPLASE) [Suspect]
     Indication: ACUTE MYOCARDIAL INFARCTION
     Dosage: IV
     Route: 042
     Dates: start: 20050103, end: 20050103
  2. ABCIXIMAB (ABCIXIMAB) [Suspect]
     Indication: ACUTE MYOCARDIAL INFARCTION
     Dosage: IV
     Route: 042
     Dates: start: 20050103
  3. ASPIRIN [Concomitant]
  4. CLOPIDOGREL BISULFATE [Concomitant]
  5. SIMVASTATIN [Concomitant]
  6. RAMIPRIL [Concomitant]
  7. ATENOLOL [Concomitant]
  8. AMIODARONE [Concomitant]

REACTIONS (6)
  - CORONARY ARTERY DISEASE [None]
  - CORONARY ARTERY STENOSIS [None]
  - EYE HAEMORRHAGE [None]
  - HAEMORRHAGE CORONARY ARTERY [None]
  - INTRAVENTRICULAR HAEMORRHAGE [None]
  - POST PROCEDURAL HAEMORRHAGE [None]
